FAERS Safety Report 26100232 (Version 1)
Quarter: 2025Q4

REPORT INFORMATION
  Report Type: Spontaneous
  Country: EU (occurrence: EU)
  Receive Date: 20251128
  Receipt Date: 20251128
  Transmission Date: 20260118
  Serious: Yes (Other)
  Sender: BAXTER
  Company Number: None

PATIENT
  Age: 63 Year
  Sex: Male
  Weight: 93 kg

DRUGS (6)
  1. PROPOFOL [Suspect]
     Active Substance: PROPOFOL
     Dosage: DOSAGE 140MG + 220, START DATE 10.30 AM END DATE 11.50 AM
     Route: 042
  2. ACETAMINOPHEN [Suspect]
     Active Substance: ACETAMINOPHEN
     Dosage: 1 G, 6 H, START DATE AT 12.30, END DATE AT 6.30 AM
     Route: 042
  3. METAMIZOLE SODIUM [Suspect]
     Active Substance: METAMIZOLE SODIUM
     Dosage: 2.5 G. 12 H, START DATE AT 2.PM. END DATE 2.00 AM
     Route: 042
  4. FENTANYL [Suspect]
     Active Substance: FENTANYL
     Dosage: 0.3 MG, START DATE AT 10.30 AM
     Route: 042
  5. ROCURONIUM [Suspect]
     Active Substance: ROCURONIUM BROMIDE
     Dosage: 50 MG, START DATE AT 10.30
     Route: 042
  6. ULTIVA [Suspect]
     Active Substance: REMIFENTANIL HYDROCHLORIDE
     Dosage: 1 MG, START DATE AT 10.30. END DATE 11.50
     Route: 042

REACTIONS (1)
  - Haematemesis [Recovered/Resolved]
